FAERS Safety Report 16254613 (Version 1)
Quarter: 2019Q2

REPORT INFORMATION
  Report Type: Spontaneous
  Country: GB (occurrence: GB)
  Receive Date: 20190430
  Receipt Date: 20190430
  Transmission Date: 20190711
  Serious: Yes (Other)
  Sender: FDA-Public Use
  Company Number: GB-ACCORD-124957

PATIENT
  Age: 95 Year
  Sex: Male
  Weight: 68 kg

DRUGS (16)
  1. FUROSEMIDE. [Suspect]
     Active Substance: FUROSEMIDE
     Indication: PRODUCT USED FOR UNKNOWN INDICATION
     Dosage: EACH MORNING
     Dates: start: 20190212
  2. GLYCERYL TRINITRATE [Concomitant]
     Active Substance: NITROGLYCERIN
     Dates: start: 20180911
  3. DOUBLEBASE [Concomitant]
     Active Substance: ISOPROPYL MYRISTATE\PARAFFIN
     Dates: start: 20180911, end: 20190109
  4. OMEPRAZOLE. [Concomitant]
     Active Substance: OMEPRAZOLE
     Dates: start: 20180911, end: 20190222
  5. CASSIA (SENNA ALEXANDRINA) [Concomitant]
     Active Substance: HERBALS\SENNOSIDES
     Dosage: AT NIGHT
     Dates: start: 20190102
  6. LAXIDO [Concomitant]
     Active Substance: POLYETHYLENE GLYCOL 3350\POTASSIUM CHLORIDE\SODIUM BICARBONATE\SODIUM CHLORIDE
     Dates: start: 20190118
  7. ATENOLOL/ATENOLOL HYDROCHLORIDE [Concomitant]
     Dosage: EACH MORNING
     Dates: start: 20180911
  8. DOCUSATE [Concomitant]
     Active Substance: DOCUSATE
     Dates: start: 20190102
  9. FLUCLOXACILLIN [Concomitant]
     Active Substance: FLUCLOXACILLIN
     Dates: start: 20190111, end: 20190118
  10. MESALAZINE [Concomitant]
     Active Substance: MESALAMINE
     Dates: start: 20180911, end: 20190109
  11. BUMETANIDE. [Suspect]
     Active Substance: BUMETANIDE
     Indication: PRODUCT USED FOR UNKNOWN INDICATION
     Dates: start: 20190212
  12. OPTIFLO C [Concomitant]
     Dosage: USE AS DIRECTED
     Dates: start: 20190112, end: 20190209
  13. TAMSULOSIN [Concomitant]
     Active Substance: TAMSULOSIN
     Dates: start: 20180911, end: 20190102
  14. PENTASA [Concomitant]
     Active Substance: MESALAMINE
     Dates: start: 20181224
  15. CETIRIZINE [Concomitant]
     Active Substance: CETIRIZINE HYDROCHLORIDE
     Dates: start: 20190211
  16. OLEA EUROPAEA [Concomitant]
     Dosage: USE AS DIRECTED
     Dates: start: 20190205

REACTIONS (3)
  - Erythema [Recovering/Resolving]
  - Rash macular [Recovering/Resolving]
  - Pallor [Unknown]

NARRATIVE: CASE EVENT DATE: 20190212
